FAERS Safety Report 7199337-5 (Version None)
Quarter: 2010Q4

REPORT INFORMATION
  Report Type: 
  Country: None (occurrence: None)
  Receive Date: 20101228
  Receipt Date: 20101222
  Transmission Date: 20110411
  Serious: Yes (Hospitalization)
  Sender: FDA-Public Use
  Company Number: FR-BRISTOL-MYERS SQUIBB COMPANY-15460512

PATIENT
  Age: 62 Year
  Sex: Female

DRUGS (8)
  1. COUMADIN [Suspect]
     Dates: end: 20101129
  2. KARDEGIC [Concomitant]
  3. IRBESARTAN [Concomitant]
  4. CARDENSIEL [Concomitant]
  5. TAHOR [Concomitant]
  6. LASIX [Concomitant]
  7. STILNOX [Concomitant]
  8. ATARAX [Concomitant]

REACTIONS (4)
  - HAEMATOMA [None]
  - RENAL FAILURE CHRONIC [None]
  - RENAL HAEMATOMA [None]
  - SHOCK HAEMORRHAGIC [None]
